FAERS Safety Report 25019301 (Version 1)
Quarter: 2025Q1

REPORT INFORMATION
  Report Type: Spontaneous
  Country: US (occurrence: US)
  Receive Date: 20250227
  Receipt Date: 20250227
  Transmission Date: 20250409
  Serious: No
  Sender: PHARMING GROUP
  Company Number: US-PHARMING-PHAUS2025000259

PATIENT

DRUGS (18)
  1. JOENJA [Suspect]
     Active Substance: LENIOLISIB PHOSPHATE
     Indication: Activated PI3 kinase delta syndrome
     Dosage: 70 MILLIGRAM, BID
     Route: 048
     Dates: start: 20240622
  2. AMLODIPINE BESYLATE [Concomitant]
     Active Substance: AMLODIPINE BESYLATE
     Indication: Product used for unknown indication
  3. BACTRIM [Concomitant]
     Active Substance: SULFAMETHOXAZOLE\TRIMETHOPRIM
     Indication: Product used for unknown indication
  4. BUDESONIDE [Concomitant]
     Active Substance: BUDESONIDE
     Indication: Product used for unknown indication
  5. CETIRIZINE [Concomitant]
     Active Substance: CETIRIZINE HYDROCHLORIDE
     Indication: Product used for unknown indication
  6. GLICLAZIDE [Concomitant]
     Active Substance: GLICLAZIDE
     Indication: Product used for unknown indication
  7. DEBROX [Concomitant]
     Active Substance: CARBAMIDE PEROXIDE
     Indication: Product used for unknown indication
  8. FLUTICASONE [Concomitant]
     Active Substance: FLUTICASONE
     Indication: Product used for unknown indication
  9. HIZENTRA [Concomitant]
     Active Substance: HUMAN IMMUNOGLOBULIN G
     Indication: Product used for unknown indication
  10. MULTIVITAMIN                       /00097801/ [Concomitant]
     Indication: Product used for unknown indication
  11. NEOMYCIN W/POLYMYXIN [Concomitant]
     Indication: Product used for unknown indication
     Route: 047
  12. NORETHINDRONE                      /00044901/ [Concomitant]
     Indication: Product used for unknown indication
  13. PANTOPRAZOLE [Concomitant]
     Active Substance: PANTOPRAZOLE
     Indication: Product used for unknown indication
  14. BIFIDOBACTERIUM ANIMALIS LACTIS [Concomitant]
     Active Substance: BIFIDOBACTERIUM ANIMALIS LACTIS
     Indication: Product used for unknown indication
  15. SALINE                             /00075401/ [Concomitant]
     Indication: Product used for unknown indication
     Route: 045
  16. SIROLIMUS [Concomitant]
     Active Substance: SIROLIMUS
     Indication: Product used for unknown indication
  17. TYLENOL [Concomitant]
     Active Substance: ACETAMINOPHEN
     Indication: Product used for unknown indication
  18. VISINE                             /00256502/ [Concomitant]
     Indication: Product used for unknown indication

REACTIONS (1)
  - Influenza [Recovered/Resolved]

NARRATIVE: CASE EVENT DATE: 20250203
